FAERS Safety Report 8362633 (Version 3)
Quarter: 2014Q2

REPORT INFORMATION
  Report Type: Spontaneous
  Country: JP (occurrence: JP)
  Receive Date: 20120130
  Receipt Date: 20140602
  Transmission Date: 20141212
  Serious: Yes (Hospitalization)
  Sender: FDA-Public Use
  Company Number: JP-ELI_LILLY_AND_COMPANY-JP201101004329

PATIENT
  Age: 48 Year
  Sex: Male
  Weight: 59.6 kg

DRUGS (1)
  1. CIALIS [Suspect]
     Dosage: UNK
     Route: 048
     Dates: start: 20110110, end: 20110110

REACTIONS (4)
  - Hypoglycaemia [Recovered/Resolved]
  - Counterfeit drug administered [Unknown]
  - Drug eruption [Recovering/Resolving]
  - Drug ineffective [Unknown]
